FAERS Safety Report 25032674 (Version 1)
Quarter: 2025Q1

REPORT INFORMATION
  Report Type: Spontaneous
  Country: US (occurrence: None)
  Receive Date: 20250303
  Receipt Date: 20250303
  Transmission Date: 20250408
  Serious: Yes (Other)
  Sender: FDA-CTU
  Company Number: None

PATIENT
  Age: 31 Year
  Sex: Female
  Weight: 106.65 kg

DRUGS (1)
  1. PALOPEGTERIPARATIDE [Suspect]
     Active Substance: PALOPEGTERIPARATIDE
     Indication: Hypoparathyroidism
     Dosage: 18 UG DAILY SUBCUTANEOUS ?
     Route: 058
     Dates: start: 20250203, end: 20250227

REACTIONS (8)
  - Injection site urticaria [None]
  - Injection site reaction [None]
  - Injection site pain [None]
  - Taste disorder [None]
  - Gastrointestinal disorder [None]
  - Erythema [None]
  - Swelling face [None]
  - Burning sensation [None]

NARRATIVE: CASE EVENT DATE: 20250227
